FAERS Safety Report 9802961 (Version 1)
Quarter: 2014Q1

REPORT INFORMATION
  Report Type: Spontaneous
  Country: US (occurrence: US)
  Receive Date: 20140108
  Receipt Date: 20140108
  Transmission Date: 20141002
  Serious: Yes (Hospitalization)
  Sender: FDA-Public Use
  Company Number: US-ASTRAZENECA-2014SE00396

PATIENT
  Age: 86 Year
  Sex: Female
  Weight: 68 kg

DRUGS (13)
  1. SYMBICORT PMDI [Suspect]
     Route: 055
     Dates: start: 20130911, end: 201309
  2. PULMICORT FLEXHALER [Suspect]
     Indication: SINUS DISORDER
     Route: 055
     Dates: start: 2013
  3. PULMICORT FLEXHALER [Suspect]
     Indication: WHEEZING
     Route: 055
     Dates: start: 2013
  4. PULMICORT FLEXHALER [Suspect]
     Indication: PNEUMONIA
     Route: 055
     Dates: start: 2013
  5. AZELISTIN [Concomitant]
     Indication: INHALATION THERAPY
     Dosage: 2 SPRAYS BID
  6. MONOLEUKAST [Concomitant]
     Dosage: 1 HS
  7. PRESCIPTION STRENGTH IBUPROFEN [Concomitant]
     Indication: ARTHRALGIA
  8. VITAMIN C [Concomitant]
  9. FISH OIL [Concomitant]
  10. CALCIUM CALTRATE PLUS VIT D [Concomitant]
  11. MULTIVITAMIN [Concomitant]
  12. MUSCINEX [Concomitant]
  13. BABY ASPIRIN [Concomitant]

REACTIONS (10)
  - Pneumonia [Unknown]
  - Feeling abnormal [Recovered/Resolved]
  - Balance disorder [Recovered/Resolved]
  - Tremor [Recovered/Resolved]
  - Upper respiratory tract infection [Unknown]
  - Sputum discoloured [Unknown]
  - Nervousness [Recovered/Resolved]
  - Dysphonia [Unknown]
  - Feeling jittery [Recovered/Resolved]
  - Intentional drug misuse [Unknown]
